FAERS Safety Report 7590662-2 (Version None)
Quarter: 2011Q3

REPORT INFORMATION
  Report Type: 
  Country: None (occurrence: None)
  Receive Date: 20110705
  Receipt Date: 20101116
  Transmission Date: 20111222
  Serious: Yes (Hospitalization, Other)
  Sender: FDA-Public Use
  Company Number: US-BAYER-200937684NA

PATIENT
  Age: 67 Year
  Sex: Female
  Weight: 59.864 kg

DRUGS (17)
  1. DOPAMINE HCL [Concomitant]
     Dosage: 400MG/250CC
     Route: 042
     Dates: start: 20011128
  2. NOREPINEPHRINE BITARTRATE [Concomitant]
     Dosage: 4MG/250CC DRIP
     Route: 042
     Dates: start: 20011128
  3. DIPHENHYDRAMINE HCL [Concomitant]
     Dosage: 50 MG, UNK
     Route: 042
     Dates: start: 20011128
  4. INDERAL [Concomitant]
     Dosage: 20 MG,DAILY
  5. LIPITOR [Concomitant]
     Dosage: 10 MG, QD
     Route: 048
  6. EPINEPHRINE [Concomitant]
     Dosage: 1:10000 10ML
     Route: 042
     Dates: start: 20011128
  7. HEPARIN [Concomitant]
     Dosage: 1000IU/ML 10ML
     Route: 042
     Dates: start: 20011128
  8. POTASSIUM [Concomitant]
     Dosage: 20MEQ
     Route: 042
     Dates: start: 20011128
  9. PROPRANOLOL [Concomitant]
     Dosage: 20 MG, QD
     Route: 048
  10. ALBUMIN (HUMAN) [Concomitant]
     Dosage: 2 U, UNK
     Dates: start: 20011128
  11. ACETYLSALICYLIC ACID SRT [Concomitant]
     Dosage: 81 MG DAILY
  12. OMNIPAQUE 140 [Concomitant]
     Indication: CATHETERISATION CARDIAC
     Dosage: 350/90 ML
     Dates: start: 20011127
  13. TRASYLOL [Suspect]
     Indication: CORONARY ARTERY BYPASS
     Dosage: 1 ML TEST DOSE, 200 CC LOADING DOSE, 50 CC/HOUR
     Route: 042
     Dates: start: 20011128, end: 20011128
  14. PROTAMINE SULFATE [Concomitant]
     Dosage: 250 MG, UNK
     Route: 042
     Dates: start: 20011128
  15. EPINEPHRINE [Concomitant]
     Dosage: 2MG/250CC DRIP
     Route: 042
     Dates: start: 20011128
  16. FUROSEMIDE [Concomitant]
     Dosage: 40 MG, BID
     Route: 048
     Dates: start: 19920423
  17. POTASSIUM CHLORIDE [Concomitant]
     Dosage: 20 MG, BID
     Route: 048

REACTIONS (6)
  - RENAL FAILURE [None]
  - INJURY [None]
  - RENAL FAILURE ACUTE [None]
  - UNEVALUABLE EVENT [None]
  - PSYCHIATRIC SYMPTOM [None]
  - PAIN [None]
